FAERS Safety Report 10250721 (Version 1)
Quarter: 2014Q2

REPORT INFORMATION
  Report Type: Spontaneous
  Country: IT (occurrence: IT)
  Receive Date: 20140620
  Receipt Date: 20140620
  Transmission Date: 20141212
  Serious: Yes (Hospitalization)
  Sender: FDA-Public Use
  Company Number: IT-TEVA-489032ISR

PATIENT
  Age: 17 Year
  Sex: Male

DRUGS (3)
  1. ACIDO VALPROICO E SODIO VALRPOATO RATIOPHARM 300 MG [Suspect]
     Indication: SCHIZOAFFECTIVE DISORDER
     Dosage: 750 MILLIGRAM DAILY;
     Route: 048
     Dates: start: 20140417, end: 20140430
  2. DELORAZEPAM [Concomitant]
  3. LEPONEX [Concomitant]

REACTIONS (3)
  - Dyshidrotic eczema [Recovered/Resolved]
  - Rash macular [Recovered/Resolved]
  - Urticaria [None]
